FAERS Safety Report 7321418-3 (Version None)
Quarter: 2011Q1

REPORT INFORMATION
  Report Type: 
  Country: None (occurrence: None)
  Receive Date: 20110228
  Receipt Date: 20100526
  Transmission Date: 20110831
  Serious: Yes (Other)
  Sender: FDA-Public Use
  Company Number: US-PFIZER INC-2010066665

PATIENT
  Sex: Male
  Weight: 53.061 kg

DRUGS (7)
  1. GEODON [Suspect]
     Indication: CONFUSIONAL STATE
  2. MIRTAZAPINE [Suspect]
     Indication: ANXIETY
     Dosage: 40 MG, 1X/DAY DAILY
     Route: 048
  3. DIGOXIN [Concomitant]
     Dosage: 30 MG, 1X/DAY DAILY
     Route: 048
  4. MIRTAZAPINE [Suspect]
     Indication: DEPRESSION
  5. MIRTAZAPINE [Suspect]
     Indication: CONVULSION
  6. GEODON [Suspect]
     Indication: AGITATION
     Dosage: 20 MG, 1X/DAY
     Route: 048
  7. ACETAMINOPHEN [Concomitant]
     Indication: PAIN
     Dosage: UNK

REACTIONS (2)
  - DYSPHAGIA [None]
  - WITHDRAWAL SYNDROME [None]
